FAERS Safety Report 21229478 (Version 1)
Quarter: 2022Q3

REPORT INFORMATION
  Report Type: Report from Study
  Country: US (occurrence: US)
  Receive Date: 20220818
  Receipt Date: 20220818
  Transmission Date: 20221026
  Serious: Yes (Other)
  Sender: FDA-Public Use
  Company Number: US-PPDUS-2022ZX000988

PATIENT
  Age: 22 Year
  Sex: Female

DRUGS (2)
  1. FINTEPLA [Suspect]
     Active Substance: FENFLURAMINE
     Indication: Severe myoclonic epilepsy of infancy
     Dosage: 13 MILLIGRAMS TWO TIMES PER DAY
     Route: 048
     Dates: start: 20220223
  2. FINTEPLA [Suspect]
     Active Substance: FENFLURAMINE
     Route: 048

REACTIONS (5)
  - Syphilis [Unknown]
  - Hypersensitivity [Unknown]
  - Drooling [Unknown]
  - Seizure [Unknown]
  - Rash [Recovering/Resolving]

NARRATIVE: CASE EVENT DATE: 20220601
